FAERS Safety Report 9440441 (Version 1)
Quarter: 2013Q3

REPORT INFORMATION
  Report Type: Spontaneous
  Country: DE (occurrence: DE)
  Receive Date: 20130805
  Receipt Date: 20130805
  Transmission Date: 20140515
  Serious: Yes (Hospitalization)
  Sender: FDA-Public Use
  Company Number: GXKR2013DE002045

PATIENT
  Age: 65 Year
  Sex: Female

DRUGS (1)
  1. AMOXICLAV 1A PHARMA [Suspect]
     Indication: PNEUMONIA
     Dosage: 1 DF, BID
     Route: 048
     Dates: start: 20130425, end: 20130505

REACTIONS (2)
  - Dysgeusia [Not Recovered/Not Resolved]
  - Weight decreased [Not Recovered/Not Resolved]
